FAERS Safety Report 8774329 (Version 1)
Quarter: 2012Q4

REPORT INFORMATION
  Report Type: 
  Country: SE (occurrence: SE)
  Receive Date: 20120907
  Receipt Date: 20120907
  Transmission Date: 20130627
  Serious: Yes (Other)
  Sender: FDA-Public Use
  Company Number: SE-BAYER-2012-091073

PATIENT
  Sex: Female

DRUGS (1)
  1. MIRENA [Suspect]
     Dosage: UNK
     Route: 015
     Dates: start: 201203, end: 20120705

REACTIONS (2)
  - Genital haemorrhage [None]
  - Infection [None]
